FAERS Safety Report 8239072 (Version 2)
Quarter: 2014Q1

REPORT INFORMATION
  Report Type: Spontaneous
  Country: US (occurrence: US)
  Receive Date: 20111110
  Receipt Date: 20140120
  Transmission Date: 20141002
  Serious: Yes (Other)
  Sender: FDA-Public Use
  Company Number: US-BAYER-2011-106879

PATIENT
  Age: 17 Year
  Sex: Female

DRUGS (7)
  1. YAZ [Suspect]
     Dosage: UNK
     Route: 048
     Dates: start: 20080204, end: 20080608
  2. IBUPROFEN [Concomitant]
     Dosage: 400 MG, UNK
     Route: 048
     Dates: start: 20080105
  3. PRO-AIR [Concomitant]
     Dosage: UNK
     Route: 045
     Dates: start: 20080204
  4. FERROUS SULFATE [Concomitant]
     Dosage: 325 MG, UNK
     Route: 048
     Dates: start: 20080320
  5. MORPHINE [Concomitant]
     Dosage: UNK
  6. ZOFRAN [Concomitant]
     Dosage: UNK
  7. IRON [Concomitant]
     Indication: ANAEMIA
     Dosage: UNK

REACTIONS (3)
  - Cholecystitis chronic [None]
  - Cholecystitis chronic [None]
  - Injury [None]
